FAERS Safety Report 8803062 (Version 2)
Quarter: 2012Q4

REPORT INFORMATION
  Report Type: 
  Country: AR (occurrence: AR)
  Receive Date: 20120924
  Receipt Date: 20121105
  Transmission Date: 20130627
  Serious: Yes (Other)
  Sender: FDA-Public Use
  Company Number: PHHY2012AR081910

PATIENT
  Age: 70 Year
  Sex: Female

DRUGS (1)
  1. DIOVAN [Suspect]
     Indication: HYPERTENSION
     Dosage: 80 mg, daily
     Dates: start: 201208

REACTIONS (3)
  - Upper limb fracture [Recovering/Resolving]
  - Blood pressure increased [Recovering/Resolving]
  - Stress [Recovering/Resolving]
